FAERS Safety Report 17145515 (Version 1)
Quarter: 2019Q4

REPORT INFORMATION
  Report Type: Other
  Country: CN (occurrence: CN)
  Receive Date: 20191212
  Receipt Date: 20191212
  Transmission Date: 20200122
  Serious: Yes (Life-Threatening)
  Sender: FDA-Public Use
  Company Number: CN-JIANGSU HENGRUI MEDICINE CO., LTD.-2077760

PATIENT
  Age: 27 Year
  Sex: Female

DRUGS (5)
  1. STERILE WATER FOR INJECTION [Concomitant]
     Active Substance: WATER
     Route: 040
     Dates: start: 20191119, end: 20191119
  2. PROPOFOL EMULSION INJECTION [Concomitant]
     Active Substance: PROPOFOL
     Route: 040
     Dates: start: 20191119, end: 20191119
  3. MIDAZOLAM [Concomitant]
     Active Substance: MIDAZOLAM HYDROCHLORIDE
     Route: 040
     Dates: start: 20191119, end: 20191119
  4. CISATRACURIUM BESYLATE INJECTION USP, 10 MG/5 ML (2 MG/ML) AND 200 MG/ [Suspect]
     Active Substance: CISATRACURIUM BESYLATE
     Indication: HYPOTONIA
     Route: 040
     Dates: start: 20191119, end: 20191119
  5. ETOMIDATE EMULSION INJECTION [Concomitant]
     Active Substance: ETOMIDATE
     Route: 040
     Dates: start: 20191119, end: 20191119

REACTIONS (1)
  - Anaphylactic shock [Recovering/Resolving]

NARRATIVE: CASE EVENT DATE: 20191119
